FAERS Safety Report 4449671-4 (Version None)
Quarter: 2004Q3

REPORT INFORMATION
  Report Type: 
  Country: None (occurrence: None)
  Receive Date: 20040913
  Receipt Date: 20040831
  Transmission Date: 20050211
  Serious: Yes (Hospitalization)
  Sender: FDA-Public Use
  Company Number: 2004196364JP

PATIENT
  Age: 74 Year
  Sex: Female
  Weight: 45 kg

DRUGS (8)
  1. CABERGOLINE [Suspect]
     Indication: PARKINSON'S DISEASE
     Dosage: 3 MG/DAY, ORAL; 4 MG, QD, ORAL; 1 MG/DAY, ORAL
     Route: 048
     Dates: start: 20010101
  2. CABERGOLINE [Suspect]
     Indication: PARKINSON'S DISEASE
     Dosage: 3 MG/DAY, ORAL; 4 MG, QD, ORAL; 1 MG/DAY, ORAL
     Route: 048
     Dates: start: 20030101
  3. MENESIT [Concomitant]
  4. MECOBALAMIN (MECOBALAMIN) [Concomitant]
  5. ASPIRIN [Concomitant]
  6. PRAVASTATIN [Concomitant]
  7. ALFAROL (ALFACALCIDOL) [Concomitant]
  8. BUP-4 (PROPIVERINE HYDROCHLORIDE) [Concomitant]

REACTIONS (3)
  - DYSKINESIA [None]
  - DYSTONIA [None]
  - MUSCULAR WEAKNESS [None]
